FAERS Safety Report 7423282-0 (Version None)
Quarter: 2011Q2

REPORT INFORMATION
  Report Type: 
  Country: None (occurrence: None)
  Receive Date: 20110419
  Receipt Date: 20101214
  Transmission Date: 20111010
  Serious: Yes (Hospitalization)
  Sender: FDA-Public Use
  Company Number: US-BAYER-201034044NA

PATIENT
  Age: 30 Year
  Sex: Female
  Weight: 68.027 kg

DRUGS (5)
  1. ANTIBIOTICS [Concomitant]
  2. YASMIN [Suspect]
     Indication: PRODUCT USED FOR UNKNOWN INDICATION
  3. YAZ [Suspect]
     Indication: PRODUCT USED FOR UNKNOWN INDICATION
     Dosage: UNK
     Dates: start: 20070418, end: 20070617
  4. IBUPROFEN [Concomitant]
  5. ADVIL LIQUI-GELS [Concomitant]

REACTIONS (4)
  - PULMONARY EMBOLISM [None]
  - CONTUSION [None]
  - SCAR [None]
  - CHEST PAIN [None]
